FAERS Safety Report 5392300-6 (Version None)
Quarter: 2007Q3

REPORT INFORMATION
  Report Type: 
  Country: None (occurrence: None)
  Receive Date: 20070720
  Receipt Date: 20070712
  Transmission Date: 20080115
  Serious: Yes (Hospitalization)
  Sender: FDA-Public Use
  Company Number: JP-ROCHE-505732

PATIENT
  Age: 43 Year
  Sex: Male

DRUGS (7)
  1. TICLOPIDINE HCL [Suspect]
     Indication: ACUTE MYOCARDIAL INFARCTION
     Dosage: THERAPY DURATION: 5 DAYS; THERAPY TIME TO ONSET: 3 DAYS.
     Route: 048
     Dates: start: 20070615, end: 20070619
  2. ASPIRIN [Concomitant]
     Indication: DRUG USE FOR UNKNOWN INDICATION
     Dosage: GENERIC REPORTED AS ACETYLSALICYLIC ACID.
     Route: 048
     Dates: start: 20070615
  3. LIPITOR [Concomitant]
     Indication: DRUG USE FOR UNKNOWN INDICATION
     Route: 048
     Dates: start: 20070618
  4. CEFZON [Concomitant]
     Indication: DRUG USE FOR UNKNOWN INDICATION
     Dosage: DOSAGE REPORTED AS 1 UNIT
     Route: 048
     Dates: start: 20070615, end: 20070618
  5. PENTCILLIN [Concomitant]
     Indication: DRUG USE FOR UNKNOWN INDICATION
     Dosage: ROUTE REPORTED AS INTRAVENOUS DRIP.
     Route: 042
     Dates: start: 20070618, end: 20070619
  6. GLYCERYL TRINITRATE [Concomitant]
     Indication: DRUG USE FOR UNKNOWN INDICATION
     Dosage: DOSE REPORTED AS 1 DF, DRUG NAME REPORTED AS MILLIS
     Route: 065
     Dates: start: 20070616
  7. HEPARIN [Concomitant]
     Indication: DRUG USE FOR UNKNOWN INDICATION
     Route: 042
     Dates: start: 20070615, end: 20070625

REACTIONS (3)
  - C-REACTIVE PROTEIN INCREASED [None]
  - GAMMA-GLUTAMYLTRANSFERASE INCREASED [None]
  - PYREXIA [None]
